FAERS Safety Report 26196533 (Version 1)
Quarter: 2025Q4

REPORT INFORMATION
  Report Type: Spontaneous
  Country: EU (occurrence: EU)
  Receive Date: 20251224
  Receipt Date: 20251224
  Transmission Date: 20260118
  Serious: Yes (Life-Threatening, Hospitalization)
  Sender: AIRGAS
  Company Number: EU-ALSI-2025000322

PATIENT
  Sex: Male
  Weight: 105 kg

DRUGS (1)
  1. NITROUS OXIDE [Suspect]
     Active Substance: NITROUS OXIDE
     Indication: Product used for unknown indication
     Dates: start: 20251101, end: 20251101

REACTIONS (5)
  - Tachycardia [Recovered/Resolved]
  - Vitamin B12 deficiency [Recovering/Resolving]
  - Drug dependence [Not Recovered/Not Resolved]
  - Cardiac failure acute [Recovered/Resolved]
  - Acute pulmonary oedema [Recovered/Resolved]

NARRATIVE: CASE EVENT DATE: 20251102
